FAERS Safety Report 14263887 (Version 4)
Quarter: 2017Q4

REPORT INFORMATION
  Report Type: Spontaneous
  Country: DE (occurrence: NL)
  Receive Date: 20171208
  Receipt Date: 20171209
  Transmission Date: 20180321
  Serious: Yes (Hospitalization)
  Sender: FDA-Public Use
  Company Number: NL-MERZ NORTH AMERICA, INC.-17MRZ-00396

PATIENT
  Age: 47 Year
  Sex: Female
  Weight: 65 kg

DRUGS (1)
  1. ASCLERA [Suspect]
     Active Substance: POLIDOCANOL
     Indication: VARICOSE VEIN
     Route: 042
     Dates: start: 20160105, end: 20160105

REACTIONS (3)
  - Phlebitis [Recovered/Resolved]
  - Myocardial infarction [Recovered/Resolved]
  - Limb discomfort [Recovered/Resolved]
